FAERS Safety Report 5303320-1 (Version None)
Quarter: 2007Q2

REPORT INFORMATION
  Report Type: 
  Country: None (occurrence: None)
  Receive Date: 20070420
  Receipt Date: 20070418
  Transmission Date: 20071010
  Serious: Yes (Hospitalization, Other)
  Sender: FDA-Public Use
  Company Number: FR-GLAXOSMITHKLINE-B0466760A

PATIENT
  Age: 77 Year
  Sex: Female
  Weight: 62 kg

DRUGS (1)
  1. ARIXTRA [Suspect]
     Dosage: 2.5MG PER DAY
     Route: 058
     Dates: start: 20070311, end: 20070316

REACTIONS (6)
  - DYSPHAGIA [None]
  - MUSCLE HAEMORRHAGE [None]
  - PNEUMONIA ASPIRATION [None]
  - RENAL FAILURE [None]
  - SHOCK HAEMORRHAGIC [None]
  - VOCAL CORD PARALYSIS [None]
